FAERS Safety Report 4333137-6 (Version None)
Quarter: 2004Q1

REPORT INFORMATION
  Report Type: 
  Country: None (occurrence: None)
  Receive Date: 20040330
  Receipt Date: 20040318
  Transmission Date: 20041129
  Serious: Yes (Hospitalization)
  Sender: FDA-Public Use
  Company Number: CEL-2004-00349-ROC

PATIENT

DRUGS (1)
  1. TUSSIONEX [Suspect]
     Indication: COUGH

REACTIONS (1)
  - RESPIRATORY DEPRESSION [None]
